FAERS Safety Report 10723695 (Version 1)
Quarter: 2015Q1

REPORT INFORMATION
  Report Type: Spontaneous
  Country: US (occurrence: None)
  Receive Date: 20150116
  Receipt Date: 20150116
  Transmission Date: 20150721
  Serious: No
  Sender: FDA-Public Use
  Company Number: None

PATIENT
  Age: 25 Year
  Sex: Male
  Weight: 85.73 kg

DRUGS (1)
  1. LEVOTHYROXINE [Suspect]
     Active Substance: LEVOTHYROXINE
     Indication: POST PROCEDURAL HYPOTHYROIDISM
     Dosage: 50 MCG?1 TABLET DAILY?ORAL
     Route: 048
     Dates: start: 201201, end: 201301

REACTIONS (3)
  - Product substitution issue [None]
  - Migraine [None]
  - Seizure [None]

NARRATIVE: CASE EVENT DATE: 201201
